FAERS Safety Report 11223612 (Version 1)
Quarter: 2015Q2

REPORT INFORMATION
  Report Type: Spontaneous
  Country: AU (occurrence: AU)
  Receive Date: 20150629
  Receipt Date: 20150629
  Transmission Date: 20150821
  Serious: Yes (Death, Hospitalization, Other)
  Sender: FDA-Public Use
  Company Number: PHHY2015AU075029

PATIENT
  Age: 57 Year
  Sex: Female

DRUGS (4)
  1. MYCOPHENOLATE MOFETIL. [Suspect]
     Active Substance: MYCOPHENOLATE MOFETIL
     Indication: IMMUNOSUPPRESSION
     Dosage: 500 MG, BID
     Route: 065
  2. TACROLIMUS. [Suspect]
     Active Substance: TACROLIMUS
     Indication: IMMUNOSUPPRESSION
     Dosage: 5 UG, UNK
     Route: 065
  3. PREDNISOLONE. [Suspect]
     Active Substance: PREDNISOLONE
     Indication: IMMUNOSUPPRESSION
     Dosage: 7.5 MG, QD
  4. CYCLOSPORINE A [Suspect]
     Active Substance: CYCLOSPORINE
     Indication: APLASTIC ANAEMIA
     Route: 065

REACTIONS (18)
  - Aspergillus infection [Fatal]
  - Nephropathy [Fatal]
  - Anaemia [Not Recovered/Not Resolved]
  - Achromotrichia acquired [Not Recovered/Not Resolved]
  - Pneumonia cytomegaloviral [Not Recovered/Not Resolved]
  - Gastroenteritis salmonella [Not Recovered/Not Resolved]
  - Pancytopenia [Not Recovered/Not Resolved]
  - Bone marrow failure [Not Recovered/Not Resolved]
  - Actinomycosis [Not Recovered/Not Resolved]
  - Embolism [Not Recovered/Not Resolved]
  - Proteinuria [Not Recovered/Not Resolved]
  - Neutropenia [Not Recovered/Not Resolved]
  - Lymphopenia [Not Recovered/Not Resolved]
  - Splenic infarction [Not Recovered/Not Resolved]
  - Cytomegalovirus viraemia [Not Recovered/Not Resolved]
  - Aplastic anaemia [Not Recovered/Not Resolved]
  - Skin ulcer [Not Recovered/Not Resolved]
  - Urinary tract infection [Not Recovered/Not Resolved]
